FAERS Safety Report 21219709 (Version 2)
Quarter: 2022Q3

REPORT INFORMATION
  Report Type: Spontaneous
  Country: US (occurrence: US)
  Receive Date: 20220817
  Receipt Date: 20220905
  Transmission Date: 20221027
  Serious: Yes (Hospitalization, Other)
  Sender: FDA-Public Use
  Company Number: US-MLMSERVICE-20220801-3709311-3

PATIENT
  Age: 66 Year
  Sex: Male

DRUGS (1)
  1. CLOZAPINE [Suspect]
     Active Substance: CLOZAPINE
     Indication: Schizophrenia
     Dosage: 400 MILLIGRAM, ONCE A DAY, AT BEDTIME
     Route: 065

REACTIONS (2)
  - Small intestinal obstruction [Recovering/Resolving]
  - Gastrointestinal hypomotility [Recovering/Resolving]
